FAERS Safety Report 15883562 (Version 11)
Quarter: 2019Q3

REPORT INFORMATION
  Report Type: Report from Study
  Country: JP (occurrence: JP)
  Receive Date: 20190129
  Receipt Date: 20190911
  Transmission Date: 20191004
  Serious: Yes (Hospitalization)
  Sender: FDA-Public Use
  Company Number: JP-ROCHE-2237347

PATIENT
  Age: 69 Year
  Sex: Female
  Weight: 44.8 kg

DRUGS (17)
  1. ATEZOLIZUMAB. [Suspect]
     Active Substance: ATEZOLIZUMAB
     Indication: HEPATOCELLULAR CARCINOMA
     Dosage: DATE OF MOST RECENT DOSE PRIOR TO SAE ONSET: 13/NOV/2018 (1200 MG)
     Route: 042
     Dates: start: 20180710
  2. BARACLUDE [Concomitant]
     Active Substance: ENTECAVIR
     Route: 065
     Dates: start: 20120315
  3. MIYA-BM [Concomitant]
     Active Substance: CLOSTRIDIUM BUTYRICUM SPORES STRAIN M-55
     Indication: DIARRHOEA
     Route: 065
     Dates: start: 20181129, end: 20181204
  4. MIYA-BM [Concomitant]
     Active Substance: CLOSTRIDIUM BUTYRICUM SPORES STRAIN M-55
     Route: 065
     Dates: start: 20181019, end: 20181030
  5. ALFACALCIDOL [Concomitant]
     Active Substance: ALFACALCIDOL
  6. ROHTO GOLD 40 [Concomitant]
     Indication: ASTHENOPIA
  7. BEVACIZUMAB. [Suspect]
     Active Substance: BEVACIZUMAB
     Indication: HEPATOCELLULAR CARCINOMA
     Dosage: DATE OF MOST RECENT DOSE PRIOR TO SAE ONSET: 13/NOV/2018 (673 MG)
     Route: 042
     Dates: start: 20180710
  8. PARIET [Concomitant]
     Active Substance: RABEPRAZOLE SODIUM
     Route: 065
     Dates: start: 20160115
  9. DAIKENCHUTO [Concomitant]
     Active Substance: HERBALS
     Route: 065
     Dates: start: 20181203
  10. BUSCOPAN [Concomitant]
     Active Substance: BUTYLSCOPOLAMINE BROMIDE
     Indication: DIARRHOEA
     Route: 065
     Dates: start: 20181208, end: 20181208
  11. LIXIANA [Concomitant]
     Active Substance: EDOXABAN TOSYLATE
     Indication: MESENTERIC VEIN THROMBOSIS
     Route: 065
     Dates: start: 20181030, end: 20181113
  12. HEPARINOID [Concomitant]
     Active Substance: CHONDROITIN SULFATE (BOVINE)
     Route: 065
     Dates: start: 20181017
  13. ALDACTONE-A [Concomitant]
     Active Substance: SPIRONOLACTONE
     Route: 065
  14. BONOTEO [Concomitant]
     Active Substance: MINODRONIC ACID
     Route: 065
  15. ALDACTONE-A [Concomitant]
     Active Substance: SPIRONOLACTONE
     Route: 065
     Dates: start: 20190201
  16. DEXALTIN [Concomitant]
     Active Substance: DEXAMETHASONE
     Indication: STOMATITIS
     Dosage: 1 MG/G
     Route: 061
     Dates: start: 20181130, end: 20181210
  17. METHYCOBAL [Concomitant]
     Active Substance: METHYLCOBALAMIN
     Indication: HYPOAESTHESIA
     Route: 065
     Dates: start: 20181206

REACTIONS (3)
  - Ascites [Unknown]
  - Hepatic encephalopathy [Unknown]
  - Fatigue [Unknown]

NARRATIVE: CASE EVENT DATE: 20181117
